FAERS Safety Report 9145920 (Version 1)
Quarter: 2013Q1

REPORT INFORMATION
  Report Type: Spontaneous
  Country: US (occurrence: None)
  Receive Date: 20130227
  Receipt Date: 20130227
  Transmission Date: 20140127
  Serious: Yes (Life-Threatening)
  Sender: FDA-Public Use
  Company Number: None

PATIENT
  Age: 78 Year
  Sex: Female
  Weight: 99.34 kg

DRUGS (3)
  1. XARELTO [Suspect]
     Dosage: 20 MG DAILY PO
     Route: 048
     Dates: start: 20130107, end: 20130108
  2. LOVENOX [Suspect]
     Dosage: 100 MG BID SC
     Route: 058
     Dates: start: 20130102, end: 20130107
  3. CARDIZEM [Concomitant]

REACTIONS (1)
  - Rectal haemorrhage [None]
